FAERS Safety Report 8770441 (Version 1)
Quarter: 2012Q4

REPORT INFORMATION
  Report Type: 
  Country: US (occurrence: US)
  Receive Date: 20120906
  Receipt Date: 20120906
  Transmission Date: 20130627
  Serious: No
  Sender: FDA-Public Use
  Company Number: US-BAYER-2012-091649

PATIENT
  Sex: Male

DRUGS (2)
  1. BETASERON [Suspect]
     Indication: PRODUCT USED FOR UNKNOWN INDICATION
     Dosage: 0.25 mg, UNK
     Route: 058
  2. AMPYRA [Concomitant]
     Dosage: 10 mg, UNK
     Dates: start: 201005

REACTIONS (2)
  - Chills [None]
  - Influenza like illness [None]
